FAERS Safety Report 9825368 (Version 1)
Quarter: 2013Q4

REPORT INFORMATION
  Report Type: Spontaneous
  Country: US (occurrence: None)
  Receive Date: 20131223
  Receipt Date: 20131223
  Transmission Date: 20140711
  Serious: Yes (Other)
  Sender: FDA-Public Use
  Company Number: 219340LEO

PATIENT
  Age: 53 Year
  Sex: Male

DRUGS (1)
  1. PICATO [Suspect]
     Indication: PRECANCEROUS CELLS PRESENT
     Dates: start: 20121005

REACTIONS (10)
  - Anxiety [None]
  - Application site erythema [None]
  - Application site vesicles [None]
  - Application site pustules [None]
  - Application site pain [None]
  - Application site burn [None]
  - Application site scab [None]
  - Accidental exposure to product [None]
  - Incorrect drug administration duration [None]
  - Drug administered at inappropriate site [None]
